FAERS Safety Report 25989054 (Version 1)
Quarter: 2025Q4

REPORT INFORMATION
  Report Type: Report from Study
  Country: US (occurrence: US)
  Receive Date: 20251103
  Receipt Date: 20251103
  Transmission Date: 20260118
  Serious: Yes (Hospitalization)
  Sender: ABBVIE
  Company Number: US-ABBVIE-6454114

PATIENT
  Age: 60 Year
  Sex: Female

DRUGS (1)
  1. RINVOQ [Suspect]
     Active Substance: UPADACITINIB
     Indication: Rheumatoid arthritis
     Route: 048
     Dates: start: 202412

REACTIONS (3)
  - Pain in extremity [Not Recovered/Not Resolved]
  - Thrombosis [Not Recovered/Not Resolved]
  - Movement disorder [Unknown]

NARRATIVE: CASE EVENT DATE: 20250101
